FAERS Safety Report 5006196-5 (Version None)
Quarter: 2006Q1

REPORT INFORMATION
  Report Type: 
  Country: None (occurrence: None)
  Receive Date: 20060327
  Receipt Date: 20051216
  Transmission Date: 20060701
  Serious: No
  Sender: FDA-Public Use
  Company Number: 220486

PATIENT
  Age: 62 Year
  Sex: Male

DRUGS (6)
  1. AVASTIN [Suspect]
     Indication: PANCREATIC CARCINOMA
     Dosage: INTRAVENOUS
     Route: 042
     Dates: start: 20051101
  2. GEMZAR [Concomitant]
  3. FLUOROURACIL [Concomitant]
  4. LEUCOVORIN CALCIUM [Concomitant]
  5. IRINOTECAN HCL [Concomitant]
  6. CISPLATIN [Concomitant]

REACTIONS (1)
  - CATHETER RELATED COMPLICATION [None]
